FAERS Safety Report 8116653-0 (Version None)
Quarter: 2012Q1

REPORT INFORMATION
  Report Type: 
  Country: None (occurrence: None)
  Receive Date: 20120206
  Receipt Date: 20120124
  Transmission Date: 20120608
  Serious: Yes (Other)
  Sender: FDA-Public Use
  Company Number: PHHY2012BR007390

PATIENT
  Sex: Female

DRUGS (2)
  1. CLONAZEPAM [Concomitant]
     Dosage: UNK UKN, UNK
  2. DIOVAN HCT [Suspect]
     Dosage: 1 DF (160/12.5 MG), UNK

REACTIONS (4)
  - OSTEOARTHRITIS [None]
  - NEPHROLITHIASIS [None]
  - BLOOD CHOLESTEROL ABNORMAL [None]
  - BLOOD PRESSURE FLUCTUATION [None]
